FAERS Safety Report 8596096-6 (Version None)
Quarter: 2012Q3

REPORT INFORMATION
  Report Type: 
  Country: None (occurrence: None)
  Receive Date: 20120815
  Receipt Date: 20120810
  Transmission Date: 20120928
  Serious: Yes (Hospitalization)
  Sender: FDA-Public Use
  Company Number: DE-ROCHE-705589

PATIENT
  Sex: Male
  Weight: 94.2 kg

DRUGS (6)
  1. AVASTIN [Suspect]
     Indication: COLORECTAL CANCER METASTATIC
     Dosage: DOSE FORM: INFUSION, LAST DOSE PRIOR TO SAE: 05 MAY 2010
     Route: 042
  2. RAMIPRIL [Concomitant]
  3. OXALIPLATIN [Suspect]
     Indication: COLORECTAL CANCER METASTATIC
     Dosage: FORM: INFUSION, LAST DOSE PRIOR TO SAE: 05 MAY 2010
     Route: 042
  4. LOPERAMIDE [Concomitant]
  5. XELODA [Suspect]
     Indication: COLORECTAL CANCER METASTATIC
     Route: 048
  6. BISOPROLOL FUMARATE [Concomitant]

REACTIONS (1)
  - RENAL FAILURE [None]
